FAERS Safety Report 9759549 (Version 1)
Quarter: 2013Q4

REPORT INFORMATION
  Report Type: Spontaneous
  Country: US (occurrence: US)
  Receive Date: 20131216
  Receipt Date: 20131216
  Transmission Date: 20140711
  Serious: No
  Sender: FDA-Public Use
  Company Number: US-GILEAD-2010-0028046

PATIENT
  Sex: Female
  Weight: 83.46 kg

DRUGS (19)
  1. LETAIRIS [Suspect]
     Indication: PULMONARY ARTERIAL HYPERTENSION
     Route: 048
     Dates: start: 20100130
  2. REVATIO [Concomitant]
  3. ASPIRIN [Concomitant]
  4. SPIRONOLACTONE [Concomitant]
  5. BUMEX [Concomitant]
  6. DIOVAN HCT [Concomitant]
  7. LESCOL XL [Concomitant]
  8. HYDROXYCHLOROQUINE [Concomitant]
  9. NASACORT [Concomitant]
  10. SEREVENT DISKUS [Concomitant]
  11. SPIRIVA [Concomitant]
  12. ALVESCO [Concomitant]
  13. PREDNISONE [Concomitant]
  14. JANUMET [Concomitant]
  15. NEXIUM [Concomitant]
  16. METOCLOPRAMIDE [Concomitant]
  17. GABAPENTIN [Concomitant]
  18. CALCIUM +VITAMIN D [Concomitant]
  19. POTASSIUM CHLORIDE [Concomitant]

REACTIONS (2)
  - Musculoskeletal discomfort [Unknown]
  - Musculoskeletal discomfort [Unknown]
